FAERS Safety Report 17538335 (Version 1)
Quarter: 2020Q1

REPORT INFORMATION
  Report Type: Spontaneous
  Country: US (occurrence: US)
  Receive Date: 20200305
  Receipt Date: 20200305
  Transmission Date: 20200409
  Serious: Yes (Hospitalization)
  Sender: FDA-Public Use
  Company Number: None

PATIENT
  Age: 29 Year
  Sex: Female
  Weight: 54.1 kg

DRUGS (7)
  1. MERCAPTOPURINE. [Suspect]
     Active Substance: MERCAPTOPURINE
     Dates: end: 20200223
  2. VINCRISTINE SULFATE. [Suspect]
     Active Substance: VINCRISTINE SULFATE
     Dates: end: 20200210
  3. ONCASPAR [Suspect]
     Active Substance: PEGASPARGASE
     Dates: end: 20200203
  4. CYCLOPHOSPHAMIDE. [Suspect]
     Active Substance: CYCLOPHOSPHAMIDE
     Dates: end: 20200217
  5. CYTARABINE. [Suspect]
     Active Substance: CYTARABINE
     Dates: end: 20200220
  6. RITUXIMAB (MOAB C2B8 ANTI CD20, CHIMERIC) [Suspect]
     Active Substance: RITUXIMAB
     Dates: end: 20200217
  7. METHOTREXATE. [Suspect]
     Active Substance: METHOTREXATE
     Dates: end: 20200210

REACTIONS (12)
  - Diarrhoea [None]
  - Fatigue [None]
  - Procalcitonin increased [None]
  - Vomiting [None]
  - Muscular weakness [None]
  - Stenotrophomonas sepsis [None]
  - Night sweats [None]
  - Heart rate increased [None]
  - Nausea [None]
  - Influenza [None]
  - Asthenia [None]
  - Febrile neutropenia [None]

NARRATIVE: CASE EVENT DATE: 20200223
